FAERS Safety Report 11351207 (Version 3)
Quarter: 2015Q3

REPORT INFORMATION
  Report Type: Report from Study
  Country: TW (occurrence: TW)
  Receive Date: 20150807
  Receipt Date: 20150914
  Transmission Date: 20151125
  Serious: Yes (Hospitalization)
  Sender: FDA-Public Use
  Company Number: TW-CELGENE-TWN-2015080629

PATIENT
  Age: 68 Year
  Sex: Male
  Weight: 65 kg

DRUGS (6)
  1. ALLEGRA [Concomitant]
     Active Substance: FEXOFENADINE HYDROCHLORIDE
     Indication: RASH
     Route: 065
     Dates: start: 20150720
  2. INDOMETHACIN. [Concomitant]
     Active Substance: INDOMETHACIN
     Indication: RASH
     Route: 061
  3. HEPARIN SODIUM. [Concomitant]
     Active Substance: HEPARIN SODIUM
     Indication: PRODUCT USED FOR UNKNOWN INDICATION
     Dosage: 180 MILLIGRAM
     Route: 041
  4. NEXIUM [Concomitant]
     Active Substance: ESOMEPRAZOLE MAGNESIUM
     Indication: GASTROOESOPHAGEAL REFLUX DISEASE
     Route: 048
     Dates: start: 20150626, end: 20150725
  5. REVLIMID [Suspect]
     Active Substance: LENALIDOMIDE
     Indication: HEPATOCELLULAR CARCINOMA
     Route: 048
     Dates: start: 20150706, end: 20150825
  6. GASTER [Concomitant]
     Active Substance: FAMOTIDINE
     Indication: GASTROOESOPHAGEAL REFLUX DISEASE
     Dosage: 4000 IU (INTERNATIONAL UNIT)
     Route: 041

REACTIONS (1)
  - Pericarditis [Recovered/Resolved]

NARRATIVE: CASE EVENT DATE: 20150726
